FAERS Safety Report 8171665-6 (Version None)
Quarter: 2012Q1

REPORT INFORMATION
  Report Type: 
  Country: None (occurrence: None)
  Receive Date: 20120228
  Receipt Date: 20120222
  Transmission Date: 20120608
  Serious: Yes (Other)
  Sender: FDA-Public Use
  Company Number: DE-JNJFOC-20120212246

PATIENT
  Sex: Female
  Weight: 75 kg

DRUGS (8)
  1. LYRICA [Concomitant]
  2. AMLODIPINE [Concomitant]
  3. IBUPROFEN [Concomitant]
  4. NOVALGIN [Concomitant]
  5. PANTOPRAZOLE [Concomitant]
  6. SIMVASTATIN [Concomitant]
  7. BISOPROLOL FUMARATE [Concomitant]
  8. XARELTO [Suspect]
     Indication: HIP ARTHROPLASTY
     Route: 048
     Dates: start: 20120130

REACTIONS (1)
  - GAMMA-GLUTAMYLTRANSFERASE INCREASED [None]
